FAERS Safety Report 17517434 (Version 1)
Quarter: 2020Q1

REPORT INFORMATION
  Report Type: Spontaneous
  Country: US (occurrence: US)
  Receive Date: 20200309
  Receipt Date: 20200309
  Transmission Date: 20200409
  Serious: Yes (Hospitalization)
  Sender: FDA-Public Use
  Company Number: None

PATIENT
  Age: 69 Year
  Sex: Female
  Weight: 174 kg

DRUGS (2)
  1. GUAIFENESIN AND CODEINE [Suspect]
     Active Substance: CODEINE\GUAIFENESIN
     Indication: COUGH
     Route: 048
     Dates: start: 20200129, end: 20200206
  2. CRESTOR [Concomitant]
     Active Substance: ROSUVASTATIN CALCIUM
     Dates: start: 20160301

REACTIONS (1)
  - Pancreatitis acute [None]

NARRATIVE: CASE EVENT DATE: 20200209
